FAERS Safety Report 18582846 (Version 2)
Quarter: 2020Q4

REPORT INFORMATION
  Report Type: Report from Study
  Country: MX (occurrence: MX)
  Receive Date: 20201205
  Receipt Date: 20201217
  Transmission Date: 20210114
  Serious: Yes (Other)
  Sender: FDA-Public Use
  Company Number: NVSC2020MX323312

PATIENT
  Age: 65 Year
  Sex: Female
  Weight: 56 kg

DRUGS (13)
  1. EXFORGE HCT [Suspect]
     Active Substance: AMLODIPINE BESYLATE\HYDROCHLOROTHIAZIDE\VALSARTAN
     Dosage: 0.5 DF, QD (OF 5/160/12.5 MG)
     Route: 048
     Dates: start: 20201119
  2. OMEPRAZOLE. [Concomitant]
     Active Substance: OMEPRAZOLE
     Indication: GASTRITIS
     Dosage: 20 MG, QD, IN THE MORNING
     Route: 048
     Dates: start: 202003
  3. DAGLA [Concomitant]
     Indication: GASTRITIS
     Dosage: 50 MG, TID, ONE BEFORE BREAKFAST, DINNER AND LUNCH)
     Route: 048
     Dates: start: 20201127, end: 20201207
  4. EXFORGE HCT [Suspect]
     Active Substance: AMLODIPINE BESYLATE\HYDROCHLOROTHIAZIDE\VALSARTAN
     Indication: HYPERTENSION
     Dosage: 0.5 DF, Q12H (2 HALF TABLETS OF 5/160/12.5 MG)
     Route: 048
     Dates: start: 20201117, end: 20201118
  5. IRON [Concomitant]
     Active Substance: IRON
     Indication: ANAEMIA
     Dosage: 1 DF, ONE APPLICATION
     Route: 042
     Dates: start: 20201117, end: 20201117
  6. ESPAVEN ENZIMATICO [Concomitant]
     Indication: GASTRITIS
     Dosage: 130 MG, QD, AFTER EACH FOOD
     Route: 048
     Dates: start: 20201127, end: 20201207
  7. CONCOR [Concomitant]
     Active Substance: BISOPROLOL FUMARATE
     Indication: BLOOD PRESSURE MEASUREMENT
     Dosage: 0.5 MG, QD (5 MG)
     Route: 048
     Dates: start: 20201117
  8. PRAMIGEL [Concomitant]
     Indication: GASTRITIS
     Dosage: 1 DF, Q12H
     Route: 048
     Dates: start: 20201127, end: 20201207
  9. FENOFIBRATE. [Concomitant]
     Active Substance: FENOFIBRATE
     Indication: HYPERCHOLESTEROLAEMIA
     Dosage: 160 MG, QD
     Route: 048
     Dates: start: 20201118
  10. ASPIRIN PROTECT [Concomitant]
     Active Substance: ASPIRIN
     Indication: ANTICOAGULANT THERAPY
     Dosage: 1 DF, QD, AT NIGHT
     Route: 048
  11. EXFORGE HCT [Suspect]
     Active Substance: AMLODIPINE BESYLATE\HYDROCHLOROTHIAZIDE\VALSARTAN
     Dosage: 0.5 DF, QD (OF 5/160/12.5 MG)
     Route: 048
  12. METFORMIN [Concomitant]
     Active Substance: METFORMIN HYDROCHLORIDE
     Indication: DIABETES MELLITUS
     Dosage: 0.5 MG, QD (850 MG), AFTER THE FOOD
     Route: 048
  13. FENOFIBRATE. [Concomitant]
     Active Substance: FENOFIBRATE
     Indication: HYPERTRIGLYCERIDAEMIA

REACTIONS (5)
  - Blood pressure abnormal [Recovered/Resolved]
  - Cardiac failure [Recovered/Resolved]
  - Product prescribing error [Unknown]
  - Wrong technique in product usage process [Unknown]
  - Off label use [Unknown]

NARRATIVE: CASE EVENT DATE: 20201119
